FAERS Safety Report 9234459 (Version 1)
Quarter: 2013Q2

REPORT INFORMATION
  Report Type: Spontaneous
  Country: US (occurrence: US)
  Receive Date: 20130416
  Receipt Date: 20130416
  Transmission Date: 20140414
  Serious: No
  Sender: FDA-Public Use
  Company Number: US-BANPHARM-20120108

PATIENT
  Age: 86 Year
  Sex: Male
  Weight: 72.72 kg

DRUGS (5)
  1. ALEVE LIQUID GELS 220 MG [Suspect]
     Indication: BACK PAIN
     Dosage: 1 DF, QD,
     Route: 048
     Dates: start: 20120823, end: 20120824
  2. VITAMIN D [Concomitant]
  3. ASPIRIN 81 MG [Concomitant]
  4. SIMVASTATIN [Concomitant]
  5. METOPROLOL [Concomitant]

REACTIONS (1)
  - Foreign body [Recovered/Resolved]
